FAERS Safety Report 18544924 (Version 1)
Quarter: 2020Q4

REPORT INFORMATION
  Report Type: Spontaneous
  Country: CA (occurrence: CA)
  Receive Date: 20201125
  Receipt Date: 20201125
  Transmission Date: 20210114
  Serious: Yes (Hospitalization, Other)
  Sender: FDA-Public Use
  Company Number: CA-ALLERGAN-2045588US

PATIENT
  Sex: Female
  Weight: 75.8 kg

DRUGS (7)
  1. KEFLEX [Suspect]
     Active Substance: CEPHALEXIN
     Indication: PRODUCT USED FOR UNKNOWN INDICATION
     Dosage: 500 MG FOUR TIMES PER DAY
     Dates: start: 20200326
  2. BIO K PLUS [Concomitant]
  3. PRENATAL VITAMINS [Concomitant]
     Active Substance: VITAMINS
  4. MACROBID [Suspect]
     Active Substance: NITROFURANTOIN\NITROFURANTOIN MONOHYDRATE
     Indication: PRODUCT USED FOR UNKNOWN INDICATION
  5. FOSFOMYCIN TROMETHAMINE - BP [Suspect]
     Active Substance: FOSFOMYCIN TROMETHAMINE
     Indication: URINARY TRACT INFECTION
     Dosage: 1 DF, SINGLE
     Route: 048
     Dates: start: 20200228, end: 20200228
  6. AMPICILLIN [Suspect]
     Active Substance: AMPICILLIN
     Indication: PRODUCT USED FOR UNKNOWN INDICATION
  7. GENTAMICIN. [Suspect]
     Active Substance: GENTAMICIN
     Indication: PRODUCT USED FOR UNKNOWN INDICATION
     Route: 042

REACTIONS (5)
  - Kidney infection [Unknown]
  - Drug ineffective [Unknown]
  - Retained placenta or membranes [Not Recovered/Not Resolved]
  - Caesarean section [Recovered/Resolved]
  - Exposure during pregnancy [Unknown]

NARRATIVE: CASE EVENT DATE: 20201012
